FAERS Safety Report 4454668-4 (Version None)
Quarter: 2004Q3

REPORT INFORMATION
  Report Type: 
  Country: None (occurrence: None)
  Receive Date: 20040920
  Receipt Date: 20040920
  Transmission Date: 20050211
  Serious: Yes (Other)
  Sender: FDA-Public Use
  Company Number: None

PATIENT
  Sex: Female
  Weight: 59.0583 kg

DRUGS (2)
  1. EFFEXOR XR [Suspect]
     Indication: POST-TRAUMATIC STRESS DISORDER
     Dosage: 150 MG EVERYDAY ORAL
     Route: 048
     Dates: start: 20040209, end: 20040919
  2. EFFEXOR XR [Suspect]
     Dosage: 37.5 MG, EVERYDAY ORAL
     Route: 048
     Dates: start: 20040514, end: 20040902

REACTIONS (11)
  - ABNORMAL BEHAVIOUR [None]
  - AGGRESSION [None]
  - ANGER [None]
  - FAMILY STRESS [None]
  - FEELING ABNORMAL [None]
  - HOSTILITY [None]
  - IMPAIRED DRIVING ABILITY [None]
  - IMPULSIVE BEHAVIOUR [None]
  - INSOMNIA [None]
  - NEGLECT OF PERSONAL APPEARANCE [None]
  - NIGHTMARE [None]
